FAERS Safety Report 17504152 (Version 1)
Quarter: 2020Q1

REPORT INFORMATION
  Report Type: Spontaneous
  Country: NL (occurrence: FR)
  Receive Date: 20200305
  Receipt Date: 20200305
  Transmission Date: 20200409
  Serious: Yes (Hospitalization)
  Sender: FDA-Public Use
  Company Number: FR-FRESENIUS KABI-FK202002161

PATIENT
  Age: 58 Year
  Sex: Male

DRUGS (4)
  1. SUCCINYLCHOLINE CHLORIDE. [Suspect]
     Active Substance: SUCCINYLCHOLINE CHLORIDE
     Indication: INDUCTION OF ANAESTHESIA
     Route: 042
     Dates: start: 20200124
  2. CIMETIDINE [Suspect]
     Active Substance: CIMETIDINE
     Indication: MEDIASTINOSCOPY
     Route: 048
     Dates: start: 20200124
  3. PROPOFOL (MANUFACTURER UNKNOWN) [Suspect]
     Active Substance: PROPOFOL
     Indication: INDUCTION OF ANAESTHESIA
     Route: 042
     Dates: start: 20200124
  4. REMIFENTANIL [Suspect]
     Active Substance: REMIFENTANIL
     Indication: MEDIASTINOSCOPY
     Route: 042
     Dates: start: 20200124

REACTIONS (1)
  - Anaphylactoid shock [Recovered/Resolved]

NARRATIVE: CASE EVENT DATE: 20200124
